FAERS Safety Report 8337682-8 (Version None)
Quarter: 2012Q2

REPORT INFORMATION
  Report Type: 
  Country: None (occurrence: None)
  Receive Date: 20120504
  Receipt Date: 20120504
  Transmission Date: 20120825
  Serious: Yes (Death)
  Sender: FDA-Public Use
  Company Number: None

PATIENT
  Age: 26 Year
  Sex: Male
  Weight: 90.718 kg

DRUGS (1)
  1. AMBIEN [Suspect]
     Indication: INSOMNIA
     Dosage: |DOSAGETEXT: 10MG||STRENGTH: 10MG||FREQ: 1 AT BEDTIME||ROUTE: ORAL|
     Route: 048
     Dates: start: 20120319, end: 20120321

REACTIONS (3)
  - MENTAL DISORDER [None]
  - INTENTIONAL SELF-INJURY [None]
  - GUN SHOT WOUND [None]
